FAERS Safety Report 4847150-3 (Version None)
Quarter: 2005Q4

REPORT INFORMATION
  Report Type: 
  Country: None (occurrence: None)
  Receive Date: 20051205
  Receipt Date: 20051205
  Transmission Date: 20060501
  Serious: Yes (Other)
  Sender: FDA-Public Use
  Company Number: None

PATIENT
  Sex: Female
  Weight: 56.6996 kg

DRUGS (1)
  1. LYRICA [Suspect]
     Indication: PAIN
     Dosage: ~ OVER PAST 2 MONTHS

REACTIONS (2)
  - ARTHRALGIA [None]
  - ARTHRITIS [None]
